FAERS Safety Report 9710834 (Version 1)
Quarter: 2013Q4

REPORT INFORMATION
  Report Type: Spontaneous
  Country: US (occurrence: US)
  Receive Date: 20131126
  Receipt Date: 20131126
  Transmission Date: 20140711
  Serious: No
  Sender: FDA-Public Use
  Company Number: US-BRISTOL-MYERS SQUIBB COMPANY-19019421

PATIENT
  Age: 61 Year
  Sex: Male
  Weight: 129.25 kg

DRUGS (3)
  1. BYDUREON [Suspect]
  2. KOMBIGLYZE XR [Concomitant]
  3. MORPHINE [Concomitant]

REACTIONS (1)
  - Injection site haemorrhage [Unknown]
